FAERS Safety Report 16188445 (Version 1)
Quarter: 2019Q2

REPORT INFORMATION
  Report Type: Spontaneous
  Country: US (occurrence: US)
  Receive Date: 20190412
  Receipt Date: 20190412
  Transmission Date: 20190711
  Serious: No
  Sender: FDA-Public Use
  Company Number: US-ACCORD-098230

PATIENT
  Sex: Female
  Weight: 83.46 kg

DRUGS (12)
  1. ATENOLOL/ATENOLOL HYDROCHLORIDE [Concomitant]
  2. FUROSEMIDE. [Concomitant]
     Active Substance: FUROSEMIDE
  3. GABAPENTIN. [Concomitant]
     Active Substance: GABAPENTIN
  4. OXYBUTYNIN. [Concomitant]
     Active Substance: OXYBUTYNIN CHLORIDE
  5. SPIRONOLACTONE ACCORD [Suspect]
     Active Substance: SPIRONOLACTONE
     Indication: BLOOD PRESSURE MEASUREMENT
     Dates: start: 201809
  6. LOSARTAN. [Concomitant]
     Active Substance: LOSARTAN
  7. POTASSIUM [Concomitant]
     Active Substance: POTASSIUM
  8. CALCIUM/CHLORIDE/MAGNESIUM [Concomitant]
  9. BUSPIRONE [Concomitant]
     Active Substance: BUSPIRONE HYDROCHLORIDE
  10. TRAMADOL. [Concomitant]
     Active Substance: TRAMADOL
  11. METFORMIN [Concomitant]
     Active Substance: METFORMIN HYDROCHLORIDE
  12. AMIODARONE [Concomitant]
     Active Substance: AMIODARONE

REACTIONS (1)
  - Product odour abnormal [Unknown]
